FAERS Safety Report 23010876 (Version 8)
Quarter: 2024Q2

REPORT INFORMATION
  Report Type: Spontaneous
  Country: US (occurrence: US)
  Receive Date: 20230929
  Receipt Date: 20240411
  Transmission Date: 20240716
  Serious: No
  Sender: FDA-Public Use
  Company Number: US-PFIZER INC-PV202300064178

PATIENT
  Age: 71 Year
  Sex: Male

DRUGS (6)
  1. BOSULIF [Suspect]
     Active Substance: BOSUTINIB MONOHYDRATE
     Indication: Chronic myeloid leukaemia
     Dosage: 300 MG, DAILY (TAKE 3 TABLETS (300 MG TOTAL) BY MOUTH DAILY)
     Route: 048
  2. BOSULIF [Suspect]
     Active Substance: BOSUTINIB MONOHYDRATE
     Dosage: 200 MG, DAILY  (TAKE 2 TABLETS (200 MG TOTAL) BY MOUTH DAILY FOR 30 DAYS)
     Route: 048
  3. BOSULIF [Suspect]
     Active Substance: BOSUTINIB MONOHYDRATE
     Dosage: 100 MG
  4. BOSULIF [Suspect]
     Active Substance: BOSUTINIB MONOHYDRATE
     Dosage: 300 MG
  5. BOSULIF [Suspect]
     Active Substance: BOSUTINIB MONOHYDRATE
     Dosage: TAKE 4 TABLETS (400 MG) BY MOUTH DAILY.
     Route: 048
  6. BOSULIF [Suspect]
     Active Substance: BOSUTINIB MONOHYDRATE
     Dosage: TAKE 3 TABLETS (300 MG) BY MOUTH DAILY, TAKE WITH FOOD. SWALLOW WHOLE. DO NOT CRUSH OR CUT
     Route: 048

REACTIONS (3)
  - Illness [Unknown]
  - Abdominal pain upper [Unknown]
  - Diarrhoea [Unknown]
